FAERS Safety Report 8816595 (Version 1)
Quarter: 2012Q4

REPORT INFORMATION
  Report Type: Spontaneous
  Country: US (occurrence: None)
  Receive Date: 20121001
  Receipt Date: 20121001
  Transmission Date: 20130627
  Serious: Yes (Hospitalization)
  Sender: FDA-Public Use
  Company Number: None

PATIENT
  Age: 37 Year
  Sex: Female

DRUGS (1)
  1. BANANA BOAT SPORT SPF 30 [Suspect]
     Dosage: Applied topically
     Route: 061
     Dates: start: 20120612

REACTIONS (2)
  - Thermal burn [None]
  - Burns second degree [None]
